FAERS Safety Report 6408483-2 (Version None)
Quarter: 2009Q4

REPORT INFORMATION
  Report Type: 
  Country: None (occurrence: None)
  Receive Date: 20091021
  Receipt Date: 20091016
  Transmission Date: 20100525
  Serious: Yes (Other)
  Sender: FDA-Public Use
  Company Number: FR-TEVA-211933ISR

PATIENT
  Sex: Female

DRUGS (4)
  1. COPAXONE [Suspect]
     Indication: MULTIPLE SCLEROSIS
     Route: 058
     Dates: start: 20090401, end: 20091001
  2. NITROFURANTOIN [Concomitant]
     Indication: BLADDER DISORDER
     Route: 048
     Dates: start: 20070101
  3. OXYBUTYNIN CHLORIDE [Concomitant]
     Indication: BLADDER DISORDER
     Route: 048
     Dates: start: 20070101
  4. TROSPIUM CHLORIDE [Concomitant]
     Indication: BLADDER DISORDER
     Route: 048
     Dates: start: 20070101

REACTIONS (1)
  - ALOPECIA [None]
